FAERS Safety Report 4359934-9 (Version None)
Quarter: 2004Q2

REPORT INFORMATION
  Report Type: 
  Country: None (occurrence: None)
  Receive Date: 20040518
  Receipt Date: 20031125
  Transmission Date: 20050107
  Serious: Yes (Other)
  Sender: FDA-Public Use
  Company Number: US-MERCK-0311USA02910B1

PATIENT
  Age: 0 Day
  Sex: Female
  Weight: 3 kg

DRUGS (6)
  1. ATAZANAVIR [Suspect]
     Indication: HIV INFECTION
     Dates: start: 20031125
  2. CRIXIVAN [Suspect]
     Indication: HIV INFECTION
     Dates: start: 20031029, end: 20031117
  3. COMBIVIR [Suspect]
     Indication: HIV INFECTION
     Dates: start: 20031029, end: 20031117
  4. COMBIVIR [Suspect]
     Dates: start: 20031125
  5. NORVIR [Suspect]
     Indication: HIV INFECTION
     Dates: start: 20031029, end: 20031117
  6. NORVIR [Suspect]
     Dates: start: 20031125

REACTIONS (3)
  - DRUG EXPOSURE DURING PREGNANCY [None]
  - NORMAL NEWBORN [None]
  - PREMATURE BABY [None]
